FAERS Safety Report 9331385 (Version 1)
Quarter: 2013Q2

REPORT INFORMATION
  Report Type: Report from Study
  Country: US (occurrence: US)
  Receive Date: 20130605
  Receipt Date: 20130605
  Transmission Date: 20140414
  Serious: Yes (Other)
  Sender: FDA-Public Use
  Company Number: PHHY2013US056389

PATIENT
  Age: 64 Year
  Sex: Female
  Weight: 79.59 kg

DRUGS (5)
  1. GILENYA [Suspect]
     Indication: MULTIPLE SCLEROSIS
     Dosage: 0.5 MG, QD
     Route: 048
     Dates: start: 20120206
  2. CYMBALTA [Suspect]
  3. ADORAL [Concomitant]
  4. PROVIGIL [Concomitant]
  5. TRAZODONE [Concomitant]

REACTIONS (16)
  - Fall [Recovering/Resolving]
  - Dyspnoea exertional [Recovering/Resolving]
  - Confusional state [Recovering/Resolving]
  - Peripheral coldness [Recovering/Resolving]
  - Cognitive disorder [Recovering/Resolving]
  - Memory impairment [Recovering/Resolving]
  - Aphasia [Recovering/Resolving]
  - Fatigue [Recovering/Resolving]
  - Asthenia [Recovering/Resolving]
  - Depression [Recovering/Resolving]
  - Tearfulness [Recovering/Resolving]
  - Cough [Recovering/Resolving]
  - Headache [Recovering/Resolving]
  - Back pain [Recovering/Resolving]
  - Dizziness [Recovering/Resolving]
  - Concomitant disease aggravated [Recovering/Resolving]
